FAERS Safety Report 24179041 (Version 1)
Quarter: 2024Q3

REPORT INFORMATION
  Report Type: Spontaneous
  Country: US (occurrence: US)
  Receive Date: 20240806
  Receipt Date: 20240806
  Transmission Date: 20241017
  Serious: No
  Sender: FERRING
  Company Number: US-FERRINGPH-2023FE03650

PATIENT
  Sex: Female

DRUGS (1)
  1. ENDOMETRIN [Suspect]
     Active Substance: PROGESTERONE
     Indication: In vitro fertilisation
     Route: 065

REACTIONS (9)
  - Vulvovaginal pruritus [Unknown]
  - Ill-defined disorder [Unknown]
  - Vaginal discharge [Unknown]
  - Vaginal odour [Unknown]
  - Vulvovaginal pain [Unknown]
  - Vulvovaginal discomfort [Unknown]
  - Drug ineffective [Unknown]
  - Recalled product administered [Unknown]
  - Vulvovaginal burning sensation [Unknown]
